FAERS Safety Report 7506011-1 (Version None)
Quarter: 2011Q2

REPORT INFORMATION
  Report Type: 
  Country: None (occurrence: None)
  Receive Date: 20110411
  Receipt Date: 20100225
  Transmission Date: 20111010
  Serious: Yes (Hospitalization, Other)
  Sender: FDA-Public Use
  Company Number: AE 2010-035

PATIENT
  Age: 68 Year
  Sex: Male
  Weight: 70.3075 kg

DRUGS (4)
  1. FAZACLO ODT [Suspect]
     Indication: SCHIZOPHRENIA, PARANOID TYPE
     Dosage: 700MG DAILY PO
     Route: 048
     Dates: start: 20041210
  2. NORVASC [Concomitant]
  3. ARTIFICIAL TEARS [Concomitant]
  4. KLONOPIN [Concomitant]

REACTIONS (1)
  - PNEUMONIA [None]
